FAERS Safety Report 5509470-9 (Version None)
Quarter: 2007Q4

REPORT INFORMATION
  Report Type: 
  Country: None (occurrence: None)
  Receive Date: 20071107
  Receipt Date: 20071026
  Transmission Date: 20080405
  Serious: Yes (Other)
  Sender: FDA-Public Use
  Company Number: US-PFIZER INC-2007080650

PATIENT
  Sex: Female
  Weight: 68.181 kg

DRUGS (7)
  1. CHANTIX [Suspect]
     Indication: SMOKING CESSATION THERAPY
     Route: 048
     Dates: start: 20070911, end: 20070101
  2. ALBUTEROL [Concomitant]
     Indication: ASTHMA
  3. PROZAC [Concomitant]
     Indication: DEPRESSION
  4. FLONASE [Concomitant]
     Indication: HYPERSENSITIVITY
  5. ACETYLSALICYLIC ACID SRT [Concomitant]
  6. ADVAIR DISKUS 100/50 [Concomitant]
     Indication: MYALGIA
  7. ADVAIR DISKUS 100/50 [Concomitant]
     Indication: PAIN

REACTIONS (8)
  - BASAL CELL CARCINOMA [None]
  - BRONCHIAL HYPERREACTIVITY [None]
  - CHEST DISCOMFORT [None]
  - DRUG DOSE OMISSION [None]
  - DYSPNOEA [None]
  - HEART RATE DECREASED [None]
  - INSOMNIA [None]
  - WRONG TECHNIQUE IN DRUG USAGE PROCESS [None]
